FAERS Safety Report 6994658-0 (Version None)
Quarter: 2010Q3

REPORT INFORMATION
  Report Type: 
  Country: None (occurrence: None)
  Receive Date: 20100914
  Receipt Date: 20100914
  Transmission Date: 20110219
  Serious: Yes (Life-Threatening, Hospitalization, Disabling)
  Sender: FDA-Public Use
  Company Number: None

PATIENT
  Age: 69 Year
  Sex: Male

DRUGS (4)
  1. CENTRUM (MULTIVITAMIN/MULTIMINERAL, TABLET) [Suspect]
     Indication: PRODUCT USED FOR UNKNOWN INDICATION
     Dosage: 30 TABLET 1X PER DAY, ORAL
     Route: 048
     Dates: start: 20091101
  2. AMARYL [Suspect]
     Indication: DIABETES MELLITUS
     Dosage: 20 MG 1X PER 12 HR. ORAL
     Route: 048
     Dates: start: 20091101, end: 20090101
  3. ENALAPRIL MALEATE [Suspect]
     Indication: PRODUCT USED FOR UNKNOWN INDICATION
     Dosage: 10 MG 1X PER 12 HR, ORAL
     Route: 048
     Dates: start: 20091101, end: 20090101
  4. GLUCOPHAGE [Suspect]
     Indication: DIABETES MELLITUS
     Dosage: 850 MG 1X PER 8 HR, ORAL
     Route: 048
     Dates: start: 20091101, end: 20090101

REACTIONS (16)
  - ABASIA [None]
  - APPARENT DEATH [None]
  - CARDIAC DISORDER [None]
  - CARDIAC PACEMAKER INSERTION [None]
  - CONDITION AGGRAVATED [None]
  - CORONARY ARTERIAL STENT INSERTION [None]
  - COUGH [None]
  - DIZZINESS [None]
  - DRUG PRESCRIBING ERROR [None]
  - DYSPNOEA [None]
  - MULTIPLE DRUG OVERDOSE [None]
  - NAUSEA [None]
  - SYNCOPE [None]
  - TACHYCARDIA [None]
  - TREMOR [None]
  - TYPE 1 DIABETES MELLITUS [None]
